FAERS Safety Report 8618421-X (Version None)
Quarter: 2012Q3

REPORT INFORMATION
  Report Type: 
  Country: None (occurrence: None)
  Receive Date: 20120824
  Receipt Date: 20120820
  Transmission Date: 20120928
  Serious: No
  Sender: FDA-Public Use
  Company Number: US-BIOGENIDEC-2012BI032620

PATIENT
  Sex: Female

DRUGS (5)
  1. AVONEX [Suspect]
     Indication: MULTIPLE SCLEROSIS
     Route: 030
     Dates: start: 20120425, end: 20120425
  2. AVONEX [Suspect]
     Route: 030
     Dates: start: 20120502, end: 20120502
  3. AVONEX [Suspect]
     Route: 030
     Dates: start: 20120516, end: 20120808
  4. DIOVAN [Concomitant]
     Indication: HYPERTENSION
  5. AVONEX [Suspect]
     Route: 030
     Dates: start: 20120509, end: 20120509

REACTIONS (13)
  - VISUAL IMPAIRMENT [None]
  - MIDDLE INSOMNIA [None]
  - HEADACHE [None]
  - TREMOR [None]
  - MUSCULAR WEAKNESS [None]
  - OEDEMA PERIPHERAL [None]
  - COORDINATION ABNORMAL [None]
  - MALAISE [None]
  - AGITATION [None]
  - FEELING OF BODY TEMPERATURE CHANGE [None]
  - HYPOTENSION [None]
  - GAIT DISTURBANCE [None]
  - VAGINAL HAEMORRHAGE [None]
